FAERS Safety Report 4416380-7 (Version None)
Quarter: 2004Q3

REPORT INFORMATION
  Report Type: 
  Country: None (occurrence: None)
  Receive Date: 20040805
  Receipt Date: 20040727
  Transmission Date: 20050211
  Serious: Yes (Other)
  Sender: FDA-Public Use
  Company Number: NL-GLAXOSMITHKLINE-B0341172A

PATIENT
  Age: 68 Year
  Sex: Female
  Weight: 90 kg

DRUGS (6)
  1. ROSIGLITAZONE MALEATE [Suspect]
     Dosage: 4MG PER DAY
     Route: 065
     Dates: start: 20040129
  2. ASCAL CARDIO [Concomitant]
     Dosage: 100MG PER DAY
     Route: 065
  3. BISOPROLOL FUMARATE [Concomitant]
     Dosage: 5MG PER DAY
     Route: 065
  4. ATORVASTATINE [Concomitant]
     Dosage: 20MG PER DAY
     Route: 065
  5. NIFEDIPINE [Concomitant]
     Dosage: 60MG PER DAY
     Route: 065
  6. GLIBENCLAMIDE [Concomitant]
     Dosage: 15MG PER DAY
     Route: 065

REACTIONS (4)
  - ARTHRALGIA [None]
  - CARDIAC DISORDER [None]
  - GASTROINTESTINAL PAIN [None]
  - SUICIDAL IDEATION [None]
